FAERS Safety Report 4721594-2 (Version None)
Quarter: 2005Q3

REPORT INFORMATION
  Report Type: 
  Country: None (occurrence: None)
  Receive Date: 20050721
  Receipt Date: 20041220
  Transmission Date: 20060218
  Serious: No
  Sender: FDA-Public Use
  Company Number: US-BRISTOL-MYERS SQUIBB COMPANY-12801445

PATIENT
  Age: 62 Year
  Sex: Female

DRUGS (5)
  1. COUMADIN [Suspect]
     Indication: TRANSIENT ISCHAEMIC ATTACK
  2. CAFFEINE [Interacting]
  3. CALCIUM GLUCONATE [Concomitant]
  4. ACTONEL [Concomitant]
  5. MULTI-VITAMIN [Concomitant]

REACTIONS (4)
  - AGITATION [None]
  - ANXIETY [None]
  - DRUG HYPERSENSITIVITY [None]
  - DRUG INTERACTION [None]
